FAERS Safety Report 26021748 (Version 1)
Quarter: 2025Q4

REPORT INFORMATION
  Report Type: Spontaneous
  Country: EU (occurrence: EU)
  Receive Date: 20251110
  Receipt Date: 20251110
  Transmission Date: 20260117
  Serious: Yes (Other)
  Sender: ACCORD
  Company Number: EU-Accord-511886

PATIENT

DRUGS (1)
  1. OXALIPLATIN [Suspect]
     Active Substance: OXALIPLATIN
     Indication: Product used for unknown indication
     Dosage: STRENGTH: 5 MG/ML, 1 VIAL OF 40 ML
     Dates: start: 20251014

REACTIONS (6)
  - Conjunctivitis [Unknown]
  - Urticaria [Unknown]
  - Tachycardia [Unknown]
  - Nausea [Unknown]
  - Chest discomfort [Unknown]
  - Throat irritation [Unknown]

NARRATIVE: CASE EVENT DATE: 20251014
